FAERS Safety Report 8435107-5 (Version None)
Quarter: 2012Q2

REPORT INFORMATION
  Report Type: 
  Country: None (occurrence: None)
  Receive Date: 20120614
  Receipt Date: 20120608
  Transmission Date: 20120825
  Serious: Yes (Other)
  Sender: FDA-Public Use
  Company Number: PHHY2012DE050584

PATIENT
  Sex: Male

DRUGS (1)
  1. ZOLEDRONOC ACID [Suspect]
     Indication: OSTEOGENESIS IMPERFECTA
     Dosage: 5 MG/100ML
     Route: 042

REACTIONS (1)
  - RECTAL CANCER METASTATIC [None]
